FAERS Safety Report 15202053 (Version 1)
Quarter: 2018Q3

REPORT INFORMATION
  Report Type: Spontaneous
  Country: GB (occurrence: GB)
  Receive Date: 20180726
  Receipt Date: 20180726
  Transmission Date: 20181010
  Serious: Yes (Life-Threatening, Hospitalization)
  Sender: FDA-Public Use
  Company Number: GB-JNJFOC-20180731173

PATIENT
  Age: 63 Year
  Sex: Female
  Weight: 50.8 kg

DRUGS (3)
  1. FLUCLOXACILLIN MAGNESIUM [Concomitant]
     Active Substance: FLUCLOXACILLIN MAGNESIUM OCTAHYDRATE
     Route: 048
  2. CLARITHROMYCIN. [Suspect]
     Active Substance: CLARITHROMYCIN
     Indication: SEPSIS
     Route: 048
     Dates: start: 20160130, end: 20160131
  3. TRAMADOL HYDROCHLORIDE. [Suspect]
     Active Substance: TRAMADOL HYDROCHLORIDE
     Indication: JOINT DISLOCATION
     Route: 048
     Dates: start: 20110501, end: 20110501

REACTIONS (3)
  - Seizure [Recovered/Resolved with Sequelae]
  - Circulatory collapse [Recovered/Resolved with Sequelae]
  - Malaise [Recovered/Resolved with Sequelae]
